FAERS Safety Report 12279621 (Version 1)
Quarter: 2016Q2

REPORT INFORMATION
  Report Type: Report from Study
  Country: None (occurrence: US)
  Receive Date: 20160418
  Receipt Date: 20160418
  Transmission Date: 20160815
  Serious: Yes (Other)
  Sender: FDA-Public Use
  Company Number: ADR-2015-00986

PATIENT
  Age: 31 Year
  Sex: Male

DRUGS (2)
  1. LIORESAL [Suspect]
     Active Substance: BACLOFEN
     Dosage: 399.7 MCG/DAY
     Dates: start: 20150406
  2. LIORESAL [Suspect]
     Active Substance: BACLOFEN
     Dosage: 399.8 MCG/DAY
     Dates: start: 20141219

REACTIONS (3)
  - Condition aggravated [Recovered/Resolved]
  - Seizure [Recovered/Resolved]
  - Muscle spasticity [Recovered/Resolved]

NARRATIVE: CASE EVENT DATE: 20150506
